FAERS Safety Report 10914302 (Version 1)
Quarter: 2015Q1

REPORT INFORMATION
  Report Type: Spontaneous
  Country: US (occurrence: None)
  Receive Date: 20150311
  Receipt Date: 20150311
  Transmission Date: 20150721
  Serious: Yes (Life-Threatening, Hospitalization)
  Sender: FDA-Public Use
  Company Number: US-2015TEC0000011

PATIENT
  Age: 37 Year
  Sex: Male

DRUGS (2)
  1. HEPARIN SODIUM INJECTION USP, PRESERVATIVE FREE (HEPARIN SODIUM) INJECTION [Suspect]
     Active Substance: HEPARIN SODIUM
     Indication: ANTICOAGULANT THERAPY
     Dosage: 80 UNITS/KG, UNK, INTRAVENOUS
     Route: 042
  2. ALTEPLASE (ALTEPLASE) [Concomitant]
     Active Substance: ALTEPLASE

REACTIONS (11)
  - Liver injury [None]
  - Hypotension [None]
  - Deep vein thrombosis [None]
  - Hypoxia [None]
  - Antiphospholipid syndrome [None]
  - Thrombolysis [None]
  - Heparin-induced thrombocytopenia [None]
  - Angiopathy [None]
  - Acute kidney injury [None]
  - Tachycardia [None]
  - Multi-organ failure [None]
